FAERS Safety Report 7395246-7 (Version None)
Quarter: 2011Q1

REPORT INFORMATION
  Report Type: 
  Country: None (occurrence: None)
  Receive Date: 20110331
  Receipt Date: 20110331
  Transmission Date: 20110831
  Serious: No
  Sender: FDA-Public Use
  Company Number: None

PATIENT
  Age: 62 Year
  Sex: Female
  Weight: 117.3 kg

DRUGS (1)
  1. EXFORGE HCT [Suspect]
     Indication: HYPERTENSION
     Dosage: 10MG (EACH TABLET = 13.9 MG) 1XDAY
     Dates: start: 20110302

REACTIONS (3)
  - JOINT SWELLING [None]
  - HEADACHE [None]
  - OEDEMA PERIPHERAL [None]
